FAERS Safety Report 14633131 (Version 5)
Quarter: 2019Q1

REPORT INFORMATION
  Report Type: Report from Study
  Country: US (occurrence: US)
  Receive Date: 20180313
  Receipt Date: 20190124
  Transmission Date: 20190417
  Serious: Yes (Death, Hospitalization)
  Sender: FDA-Public Use
  Company Number: US-ACTELION-A-NJ2018-168703

PATIENT
  Age: 47 Year
  Sex: Female

DRUGS (1)
  1. OPSUMIT [Suspect]
     Active Substance: MACITENTAN
     Indication: DERMATOMYOSITIS
     Dosage: 10 MG, QD
     Route: 048
     Dates: start: 20170320

REACTIONS (6)
  - Gastrointestinal tube insertion [Unknown]
  - Death [Fatal]
  - Pneumonia [Recovered/Resolved]
  - Dyspnoea [Unknown]
  - Infection [Not Recovered/Not Resolved]
  - Scleroderma [Unknown]

NARRATIVE: CASE EVENT DATE: 20180305
